FAERS Safety Report 24035883 (Version 3)
Quarter: 2024Q3

REPORT INFORMATION
  Report Type: Spontaneous
  Country: JP (occurrence: JP)
  Receive Date: 20240701
  Receipt Date: 20240809
  Transmission Date: 20241017
  Serious: Yes (Hospitalization, Other)
  Sender: ABBVIE
  Company Number: JP-GSKNCCC-Case-02008629_AE-84737

PATIENT
  Age: 59 Year
  Sex: Male
  Weight: 60 kg

DRUGS (6)
  1. BOTOX [Suspect]
     Active Substance: ONABOTULINUMTOXINA
     Indication: Facial spasm
     Dosage: 12.5 IU
     Route: 058
     Dates: start: 20240530, end: 20240530
  2. BENZBROMARONE [Concomitant]
     Active Substance: BENZBROMARONE
     Indication: Product used for unknown indication
     Dosage: 25 MG
     Route: 048
  3. LIPIDIL [Concomitant]
     Active Substance: FENOFIBRATE
     Indication: Product used for unknown indication
     Dosage: 160 MG
     Route: 048
  4. RIVOTRIL [Concomitant]
     Active Substance: CLONAZEPAM
     Indication: Facial spasm
     Dosage: 0.5 MG
     Route: 048
     Dates: start: 20180806
  5. CO DIO EX [Concomitant]
     Indication: Product used for unknown indication
     Dosage: UNK
     Route: 048
  6. ADALAT CC [Concomitant]
     Active Substance: NIFEDIPINE
     Indication: Product used for unknown indication
     Dosage: 40 MG
     Route: 048

REACTIONS (8)
  - Paraesthesia [Recovered/Resolved]
  - Paralysis [Recovered/Resolved]
  - Eyelid ptosis [Recovering/Resolving]
  - Dysphagia [Recovered/Resolved]
  - Constipation [Not Recovered/Not Resolved]
  - Visual acuity reduced [Not Recovered/Not Resolved]
  - Muscular weakness [Unknown]
  - Neuropathy peripheral [Unknown]

NARRATIVE: CASE EVENT DATE: 20240101
